FAERS Safety Report 16921460 (Version 1)
Quarter: 2019Q4

REPORT INFORMATION
  Report Type: Report from Study
  Country: US (occurrence: US)
  Receive Date: 20191015
  Receipt Date: 20191015
  Transmission Date: 20200122
  Serious: Yes (Other)
  Sender: FDA-Public Use
  Company Number: US-GILEAD-2019-0433193

PATIENT
  Sex: Male

DRUGS (11)
  1. ALBUTEROL SULFATE. [Concomitant]
     Active Substance: ALBUTEROL SULFATE
  2. ADVAIR HFA [Concomitant]
     Active Substance: FLUTICASONE PROPIONATE\SALMETEROL XINAFOATE
  3. AZITHROMYCIN ANHYDROUS. [Concomitant]
     Active Substance: AZITHROMYCIN ANHYDROUS
  4. VITAMIN D2 [Concomitant]
     Active Substance: ERGOCALCIFEROL
  5. AQUADEKS [Concomitant]
     Active Substance: MINERALS\VITAMINS
  6. AZTREONAM LYSINE [Suspect]
     Active Substance: AZTREONAM LYSINE
     Indication: PRODUCT USED FOR UNKNOWN INDICATION
     Dosage: 75 MG, TID
  7. FLONASE [Concomitant]
     Active Substance: FLUTICASONE PROPIONATE
  8. CREON [Concomitant]
     Active Substance: PANCRELIPASE AMYLASE\PANCRELIPASE LIPASE\PANCRELIPASE PROTEASE
  9. MIRTAZAPINE. [Concomitant]
     Active Substance: MIRTAZAPINE
  10. PULMOZYME [Concomitant]
     Active Substance: DORNASE ALFA
  11. HYPER-SAL 7 % [Concomitant]

REACTIONS (2)
  - Sinusitis [Unknown]
  - Sinus operation [Unknown]

NARRATIVE: CASE EVENT DATE: 20191010
